FAERS Safety Report 6282354-7 (Version None)
Quarter: 2009Q3

REPORT INFORMATION
  Report Type: 
  Country: None (occurrence: None)
  Receive Date: 20090724
  Receipt Date: 20090715
  Transmission Date: 20100115
  Serious: Yes (Hospitalization)
  Sender: FDA-Public Use
  Company Number: FR-JNJFOC-20090704557

PATIENT
  Age: 78 Year
  Sex: Female

DRUGS (6)
  1. CAELYX [Suspect]
     Route: 042
  2. CAELYX [Suspect]
     Dosage: CYCLE 2
     Route: 042
  3. CAELYX [Suspect]
     Indication: BREAST CANCER METASTATIC
     Dosage: 1ST DOSE
     Route: 042
  4. LASIX [Concomitant]
     Route: 065
  5. LEVOTHYROX [Concomitant]
     Route: 065
  6. DILTIAZEM [Concomitant]
     Route: 065

REACTIONS (1)
  - CANDIDIASIS [None]
